FAERS Safety Report 14165588 (Version 1)
Quarter: 2017Q4

REPORT INFORMATION
  Report Type: Spontaneous
  Country: IT (occurrence: IT)
  Receive Date: 20171107
  Receipt Date: 20171107
  Transmission Date: 20180321
  Serious: Yes (Other)
  Sender: FDA-Public Use
  Company Number: IT-PFIZER INC-2017446415

PATIENT
  Age: 47 Year
  Sex: Female

DRUGS (2)
  1. LORAZEPAM. [Suspect]
     Active Substance: LORAZEPAM
     Dosage: 15 DF
     Route: 048
     Dates: start: 20170921, end: 20170921
  2. HALDOL [Suspect]
     Active Substance: HALOPERIDOL
     Dosage: UNK
     Dates: start: 20170921, end: 20170921

REACTIONS (4)
  - Overdose [Recovered/Resolved]
  - Intentional self-injury [Recovered/Resolved]
  - Asthenia [Recovered/Resolved]
  - Bradykinesia [Unknown]

NARRATIVE: CASE EVENT DATE: 20170921
